FAERS Safety Report 6826856-0 (Version None)
Quarter: 2010Q3

REPORT INFORMATION
  Report Type: 
  Country: None (occurrence: None)
  Receive Date: 20100709
  Receipt Date: 20100625
  Transmission Date: 20110219
  Serious: Yes (Hospitalization)
  Sender: FDA-Public Use
  Company Number: PHHY2010US38914

PATIENT
  Sex: Female
  Weight: 142.86 kg

DRUGS (1)
  1. TASIGNA [Suspect]
     Indication: CHRONIC MYELOID LEUKAEMIA
     Dosage: 200 MG/DAY
     Route: 048
     Dates: start: 20100422

REACTIONS (6)
  - BLOOD CREATININE INCREASED [None]
  - CATHETERISATION CARDIAC [None]
  - CHEST PAIN [None]
  - MYOCARDIAL INFARCTION [None]
  - STENT PLACEMENT [None]
  - TROPONIN INCREASED [None]
